FAERS Safety Report 6530772-1 (Version None)
Quarter: 2010Q1

REPORT INFORMATION
  Report Type: 
  Country: None (occurrence: None)
  Receive Date: 20100108
  Receipt Date: 20090427
  Transmission Date: 20100710
  Serious: No
  Sender: FDA-Public Use
  Company Number: A0766612A

PATIENT
  Age: 67 Year
  Sex: Female
  Weight: 67.7 kg

DRUGS (4)
  1. LOVAZA [Suspect]
     Dosage: 2G TWICE PER DAY
     Route: 048
     Dates: start: 20080101, end: 20080901
  2. ADVAIR DISKUS 100/50 [Suspect]
     Indication: CHRONIC OBSTRUCTIVE PULMONARY DISEASE
     Route: 055
     Dates: start: 20040101
  3. NEXIUM [Concomitant]
  4. EVISTA [Concomitant]

REACTIONS (8)
  - ABDOMINAL DISTENSION [None]
  - COELIAC DISEASE [None]
  - COUGH [None]
  - DIARRHOEA [None]
  - DYSPHONIA [None]
  - FLATULENCE [None]
  - INTESTINAL MUCOSAL ATROPHY [None]
  - NAUSEA [None]
